FAERS Safety Report 10710561 (Version 1)
Quarter: 2015Q1

REPORT INFORMATION
  Report Type: Spontaneous
  Country: US (occurrence: None)
  Receive Date: 20150112
  Receipt Date: 20150112
  Transmission Date: 20150721
  Serious: Yes (Other)
  Sender: FDA-Public Use
  Company Number: 2014-US-012891

PATIENT
  Age: 36 Year
  Sex: Female

DRUGS (2)
  1. XYREM [Suspect]
     Active Substance: SODIUM OXYBATE
     Route: 048
     Dates: start: 201003, end: 201003
  2. XYREM [Suspect]
     Active Substance: SODIUM OXYBATE
     Indication: NARCOLEPSY
     Route: 048
     Dates: start: 201003, end: 201003

REACTIONS (6)
  - Erosive oesophagitis [None]
  - Precancerous cells present [None]
  - Diarrhoea [None]
  - Abdominal pain upper [None]
  - Gastrointestinal disorder [None]
  - Back pain [None]

NARRATIVE: CASE EVENT DATE: 201411
